FAERS Safety Report 9018331 (Version 1)
Quarter: 2013Q1

REPORT INFORMATION
  Report Type: Spontaneous
  Country: US (occurrence: None)
  Receive Date: 20130111
  Receipt Date: 20130111
  Transmission Date: 20140127
  Serious: Yes (Hospitalization)
  Sender: FDA-Public Use
  Company Number: None

PATIENT
  Age: 68 Year
  Sex: Male

DRUGS (14)
  1. AUGMENTIN [Suspect]
     Dosage: IVBP
  2. KEFLEX [Suspect]
  3. ZOSYN [Suspect]
  4. AMBIEN [Concomitant]
  5. ZOCOR [Concomitant]
  6. PRILOSEC [Concomitant]
  7. HUMULIN/NOVOLIN [Concomitant]
  8. SENOKOT [Concomitant]
  9. PLAVIX [Concomitant]
  10. PULMICORT [Concomitant]
  11. ASA [Concomitant]
  12. DUONEB [Concomitant]
  13. LISINOPRIL [Concomitant]
  14. LASIX [Concomitant]

REACTIONS (3)
  - Cellulitis [None]
  - Drug eruption [None]
  - Renal failure acute [None]
